FAERS Safety Report 9894520 (Version 1)
Quarter: 2014Q1

REPORT INFORMATION
  Report Type: Spontaneous
  Country: US (occurrence: US)
  Receive Date: 20140213
  Receipt Date: 20140213
  Transmission Date: 20141002
  Serious: Yes (Hospitalization, Other)
  Sender: FDA-Public Use
  Company Number: US-B.I. PHARMACEUTICALS,INC./RIDGEFIELD-2014-BI-05447GD

PATIENT
  Age: 65 Year
  Sex: Male

DRUGS (2)
  1. PRADAXA [Suspect]
     Indication: ATRIAL FIBRILLATION
     Dosage: 300 MG
     Route: 048
  2. AMIODARONE [Suspect]
     Indication: ATRIAL FIBRILLATION

REACTIONS (6)
  - Cardiac failure [Unknown]
  - Atrial thrombosis [Unknown]
  - Toxicity to various agents [Unknown]
  - Drug interaction [Unknown]
  - Melaena [Recovered/Resolved]
  - Gastritis erosive [Unknown]
